FAERS Safety Report 4940491-0 (Version None)
Quarter: 2006Q1

REPORT INFORMATION
  Report Type: 
  Country: None (occurrence: None)
  Receive Date: 20060131
  Receipt Date: 20051017
  Transmission Date: 20060701
  Serious: No
  Sender: FDA-Public Use
  Company Number: 200517119US

PATIENT
  Age: 30 Year
  Sex: Female
  Weight: 90 kg

DRUGS (5)
  1. KETEK [Suspect]
     Indication: BRONCHITIS ACUTE
     Dosage: 800 MG QD PO
     Route: 048
     Dates: start: 20051002, end: 20051004
  2. AVANDIA [Concomitant]
  3. CETIRIZINE HYDOCHLORIDE (ZYRTEC) [Concomitant]
  4. FLUTICASONE PROPIONATE, SALMETEROL XINAFOATE (ADVAIR DISKUS) [Concomitant]
  5. ALBUTEROL [Concomitant]

REACTIONS (3)
  - CHEST PAIN [None]
  - DYSPHAGIA [None]
  - ORAL MUCOSAL BLISTERING [None]
